FAERS Safety Report 5034390-6 (Version None)
Quarter: 2006Q2

REPORT INFORMATION
  Report Type: 
  Country: None (occurrence: None)
  Receive Date: 20060626
  Receipt Date: 20060616
  Transmission Date: 20061013
  Serious: Yes (Other)
  Sender: FDA-Public Use
  Company Number: US-JNJFOC-20060604078

PATIENT
  Sex: Female
  Weight: 68.49 kg

DRUGS (6)
  1. REMICADE [Suspect]
     Indication: RHEUMATOID ARTHRITIS
     Route: 042
  2. PREDNISONE [Concomitant]
  3. CELEBREX [Concomitant]
  4. TOPROL-XL [Concomitant]
  5. LEVAQUIN [Concomitant]
  6. FOLIC ACID [Concomitant]

REACTIONS (2)
  - DIABETES MELLITUS [None]
  - PNEUMONIA [None]
